FAERS Safety Report 9537378 (Version 1)
Quarter: 2013Q3

REPORT INFORMATION
  Report Type: Report from Study
  Country: US (occurrence: US)
  Receive Date: 20130919
  Receipt Date: 20130919
  Transmission Date: 20140515
  Serious: Yes (Other)
  Sender: FDA-Public Use
  Company Number: PHEH2013US019514

PATIENT
  Age: 38 Year
  Sex: Female

DRUGS (9)
  1. GILENYA [Suspect]
     Indication: MULTIPLE SCLEROSIS
     Dosage: 0.5 MG, QD
     Route: 048
     Dates: start: 201207, end: 201308
  2. LISINOPRIL [Concomitant]
  3. AMANTADINE [Concomitant]
  4. GABAPENTIN [Concomitant]
  5. ZYRTEC [Concomitant]
  6. FLONASE [Concomitant]
  7. TRAMADOL [Concomitant]
  8. VITAMIN D [Concomitant]
  9. COUMADINE [Concomitant]

REACTIONS (2)
  - Pulmonary embolism [Unknown]
  - White blood cell count decreased [Unknown]
